FAERS Safety Report 6204488-5 (Version None)
Quarter: 2009Q2

REPORT INFORMATION
  Report Type: 
  Country: None (occurrence: None)
  Receive Date: 20090527
  Receipt Date: 20090513
  Transmission Date: 20091009
  Serious: Yes (Hospitalization)
  Sender: FDA-Public Use
  Company Number: FR-PFIZER INC-2009205701

PATIENT
  Age: 61 Year

DRUGS (7)
  1. AROMASINE [Suspect]
     Dosage: 1 DF, 1X/DAY
     Route: 048
  2. GLEEVEC [Suspect]
     Dosage: 400 MG, 2X/DAY
     Route: 048
     Dates: start: 20040501, end: 20090101
  3. GLEEVEC [Suspect]
     Dosage: 800 MG, 1X/DAY
     Dates: start: 20090101
  4. FUROSEMIDE [Concomitant]
     Dosage: 40 MG, 1X/DAY
     Route: 048
  5. NEXIUM [Concomitant]
     Dosage: 1 DF, 1X/DAY
     Route: 048
  6. DOMPERIDONE [Concomitant]
     Dosage: 2 DF, 1X/DAY
     Route: 048
  7. CARBOSYLANE [Concomitant]
     Dosage: 2 DF, 1X/DAY
     Route: 048

REACTIONS (1)
  - EXTREMITY NECROSIS [None]
